FAERS Safety Report 25364819 (Version 2)
Quarter: 2025Q3

REPORT INFORMATION
  Report Type: Report from Study
  Country: IN (occurrence: IN)
  Receive Date: 20250527
  Receipt Date: 20250810
  Transmission Date: 20251021
  Serious: Yes (Hospitalization)
  Sender: ALEXION PHARMACEUTICALS
  Company Number: IN-AstraZeneca-CH-00876428A

PATIENT
  Sex: Male
  Weight: 68 kg

DRUGS (1)
  1. DURVALUMAB [Suspect]
     Active Substance: DURVALUMAB
     Indication: Hepatocellular carcinoma
     Dosage: 1500 MILLIGRAM, Q3W

REACTIONS (3)
  - Ammonia decreased [Unknown]
  - Hepatitis C [Unknown]
  - Hepatic cirrhosis [Unknown]
